FAERS Safety Report 7956798-9 (Version None)
Quarter: 2011Q4

REPORT INFORMATION
  Report Type: 
  Country: None (occurrence: None)
  Receive Date: 20111205
  Receipt Date: 20111012
  Transmission Date: 20120403
  Serious: No
  Sender: FDA-Public Use
  Company Number: US-BAYER-2011-099869

PATIENT

DRUGS (2)
  1. ALEVE (CAPLET) [Suspect]
     Dosage: 3 DF, ONCE
     Route: 048
     Dates: start: 20111012
  2. ZANTAC [Concomitant]
     Dosage: 1 DF, ONCE
     Route: 048
     Dates: start: 20111012

REACTIONS (1)
  - NO ADVERSE EVENT [None]
